FAERS Safety Report 17225248 (Version 1)
Quarter: 2020Q1

REPORT INFORMATION
  Report Type: Spontaneous
  Country: US (occurrence: US)
  Receive Date: 20200102
  Receipt Date: 20200102
  Transmission Date: 20200409
  Serious: Yes (Other)
  Sender: FDA-Public Use
  Company Number: US-PFIZER INC-2019561827

PATIENT
  Age: 56 Year
  Sex: Male
  Weight: 82.1 kg

DRUGS (2)
  1. SYNERCID [Suspect]
     Active Substance: DALFOPRISTIN\QUINUPRISTIN
     Indication: ENTEROCOCCAL INFECTION
     Dosage: UNK
  2. SYNERCID [Suspect]
     Active Substance: DALFOPRISTIN\QUINUPRISTIN
     Indication: SEPSIS

REACTIONS (4)
  - Off label use [Unknown]
  - Disease recurrence [Not Recovered/Not Resolved]
  - Drug ineffective for unapproved indication [Not Recovered/Not Resolved]
  - Product use in unapproved indication [Unknown]

NARRATIVE: CASE EVENT DATE: 201912
